FAERS Safety Report 12600625 (Version 3)
Quarter: 2016Q4

REPORT INFORMATION
  Report Type: Report from Study
  Country: None (occurrence: US)
  Receive Date: 20160727
  Receipt Date: 20161109
  Transmission Date: 20170207
  Serious: Yes (Other)
  Sender: FDA-Public Use
  Company Number: US-ABBVIE-16K-163-1681231-00

PATIENT
  Age: 55 Year
  Sex: Female

DRUGS (2)
  1. HUMIRA [Suspect]
     Active Substance: ADALIMUMAB
     Indication: RHEUMATOID ARTHRITIS
  2. HUMIRA [Suspect]
     Active Substance: ADALIMUMAB
     Indication: CROHN^S DISEASE
     Route: 058
     Dates: start: 2015

REACTIONS (12)
  - Surgery [Not Recovered/Not Resolved]
  - Intestinal haemorrhage [Recovering/Resolving]
  - Burn infection [Not Recovered/Not Resolved]
  - Wound infection [Not Recovered/Not Resolved]
  - Drug dose omission [Recovered/Resolved]
  - Volvulus [Recovering/Resolving]
  - Infection [Unknown]
  - Crohn^s disease [Unknown]
  - Product packaging quantity issue [Unknown]
  - Ulcer haemorrhage [Not Recovered/Not Resolved]
  - Small intestine ulcer [Recovering/Resolving]
  - Upper respiratory tract infection [Recovering/Resolving]

NARRATIVE: CASE EVENT DATE: 20160707
